FAERS Safety Report 7814098-1 (Version None)
Quarter: 2011Q4

REPORT INFORMATION
  Report Type: 
  Country: None (occurrence: None)
  Receive Date: 20111011
  Receipt Date: 20111005
  Transmission Date: 20120403
  Serious: Yes (Other)
  Sender: FDA-Public Use
  Company Number: ACO_26922_2011

PATIENT
  Age: 54 Year
  Sex: Female

DRUGS (9)
  1. PREMARIN [Concomitant]
  2. ASPIRIN [Concomitant]
  3. CALCIUM CARBONATE [Concomitant]
  4. AMPYRA [Suspect]
     Indication: GAIT DISTURBANCE
     Dosage: 10 MG, Q 12 HRS, ORAL
     Route: 048
     Dates: start: 20110120, end: 20110901
  5. OXYBUTYNIN [Concomitant]
  6. MULTIVITAMIN /00831701/ (VITAMINS NOS) [Concomitant]
  7. SIMVASTATIN [Concomitant]
  8. ERGOCALCIFEROL [Concomitant]
  9. COPAXONE [Concomitant]

REACTIONS (7)
  - MEMORY IMPAIRMENT [None]
  - GLOSSODYNIA [None]
  - BITE [None]
  - HEADACHE [None]
  - TONGUE HAEMORRHAGE [None]
  - URINARY INCONTINENCE [None]
  - CONVULSION [None]
